FAERS Safety Report 9959817 (Version 1)
Quarter: 2014Q1

REPORT INFORMATION
  Report Type: Report from Study
  Country: US (occurrence: US)
  Receive Date: 20140305
  Receipt Date: 20140305
  Transmission Date: 20141002
  Serious: No
  Sender: FDA-Public Use
  Company Number: US-ABBVIE-13P-163-1105180-00

PATIENT
  Age: 26 Year
  Sex: Female

DRUGS (26)
  1. HUMIRA [Suspect]
     Indication: CROHN^S DISEASE
     Dates: start: 20130111
  2. HUMIRA [Suspect]
     Dates: start: 20130125
  3. HUMIRA [Suspect]
     Dates: start: 20130208
  4. HUMIRA [Suspect]
  5. DOCUSATE [Concomitant]
     Indication: PRODUCT USED FOR UNKNOWN INDICATION
  6. MIRALAX [Concomitant]
     Indication: CONSTIPATION
  7. LOMOTIL [Concomitant]
     Indication: DIARRHOEA
  8. ATIVAN [Concomitant]
     Indication: ANXIETY
  9. ZOLOFT [Concomitant]
     Indication: DEPRESSION
     Dosage: AT SLEEP
  10. NASONEX [Concomitant]
     Indication: HYPERSENSITIVITY
     Dosage: 2 PUFFS EACH NOSTRIL DAILY
     Route: 045
  11. SINGULAIR [Concomitant]
     Indication: ASTHMA
  12. LUCERA [Concomitant]
     Indication: CONTRACEPTION
     Dosage: DAILY
  13. ZOFRAN [Concomitant]
     Indication: NAUSEA
  14. ZOFRAN [Concomitant]
     Indication: VOMITING
  15. PHENERGAN [Concomitant]
     Indication: NAUSEA
  16. PHENERGAN [Concomitant]
     Indication: VOMITING
  17. ANALPRAM E [Concomitant]
     Indication: CROHN^S DISEASE
  18. AMBIEN [Concomitant]
     Indication: INSOMNIA
     Dosage: AT SLEEP
  19. TRIAMCINOLONE [Concomitant]
     Indication: PRODUCT USED FOR UNKNOWN INDICATION
  20. CLOBETASOL [Concomitant]
     Indication: PSORIASIS
  21. FOLIC ACID [Concomitant]
     Indication: SUPPLEMENTATION THERAPY
  22. PRED FORTE [Concomitant]
     Indication: PRODUCT USED FOR UNKNOWN INDICATION
  23. FIORICET [Concomitant]
     Indication: MIGRAINE
     Dosage: ONE DOSAGE
  24. ROBAXIN [Concomitant]
     Indication: MUSCLE SPASMS
  25. TRAMADOL [Concomitant]
     Indication: BACK PAIN
  26. STEROID [Concomitant]
     Indication: BACK PAIN
     Dosage: IN THE BACK

REACTIONS (3)
  - Anal fissure [Unknown]
  - Crohn^s disease [Recovering/Resolving]
  - Crohn^s disease [Recovered/Resolved]
